FAERS Safety Report 21433112 (Version 2)
Quarter: 2022Q4

REPORT INFORMATION
  Report Type: Report from Study
  Country: PA (occurrence: PA)
  Receive Date: 20221010
  Receipt Date: 20221120
  Transmission Date: 20230112
  Serious: Yes (Other)
  Sender: FDA-Public Use
  Company Number: PA-NOVARTISPH-NVSC2022PA218528

PATIENT
  Sex: Female

DRUGS (2)
  1. KISQALI [Suspect]
     Active Substance: RIBOCICLIB
     Indication: Breast cancer metastatic
     Dosage: 600 MG, QD (3 TABLETS)
     Route: 048
     Dates: start: 202207, end: 202211
  2. FULVESTRANT [Suspect]
     Active Substance: FULVESTRANT
     Indication: Product used for unknown indication
     Dosage: UNK
     Route: 042

REACTIONS (7)
  - Metastases to liver [Unknown]
  - Neoplasm progression [Unknown]
  - Weight decreased [Unknown]
  - Pain in extremity [Unknown]
  - Skin exfoliation [Not Recovered/Not Resolved]
  - Nail disorder [Unknown]
  - Ligament sprain [Unknown]
